FAERS Safety Report 7129564-4 (Version None)
Quarter: 2010Q4

REPORT INFORMATION
  Report Type: 
  Country: None (occurrence: None)
  Receive Date: 20101130
  Receipt Date: 20101117
  Transmission Date: 20110411
  Serious: Yes (Hospitalization, Other)
  Sender: FDA-Public Use
  Company Number: US-ELI_LILLY_AND_COMPANY-US201011005583

PATIENT
  Sex: Male

DRUGS (13)
  1. FORTEO [Suspect]
     Indication: OSTEOPOROSIS
     Dosage: 20 UG, DAILY (1/D)
  2. LEXAPRO [Concomitant]
     Dosage: 20 MG, UNK
  3. STALEVO 100 [Concomitant]
     Dosage: 75 MG, UNK
  4. REQUIP [Concomitant]
     Dosage: 8 MG, UNK
  5. AZILECT [Concomitant]
     Dosage: 1 MG, UNK
  6. ENABLEX                            /01760402/ [Concomitant]
     Dosage: 15 MG, UNK
  7. PRAVASTATIN [Concomitant]
     Dosage: 40 MG, UNK
  8. FUROSEMIDE [Concomitant]
     Dosage: 20 MG, AS NEEDED
  9. TYLENOL (CAPLET) [Concomitant]
     Dosage: UNK, EACH MORNING
  10. COLACE [Concomitant]
     Dosage: UNK, DAILY (1/D)
  11. CITRACAL PLUS [Concomitant]
  12. MULTI-VITAMIN [Concomitant]
     Dosage: UNK, DAILY (1/D)
  13. EXELON [Concomitant]
     Dosage: 4.6 MG, DAILY (1/D)
     Route: 062

REACTIONS (3)
  - BALANCE DISORDER [None]
  - FALL [None]
  - HIP FRACTURE [None]
